FAERS Safety Report 16117306 (Version 1)
Quarter: 2019Q1

REPORT INFORMATION
  Report Type: Spontaneous
  Country: FR (occurrence: FR)
  Receive Date: 20190326
  Receipt Date: 20190326
  Transmission Date: 20190418
  Serious: Yes (Hospitalization)
  Sender: FDA-Public Use
  Company Number: FR-TEVA-2019-FR-1028959

PATIENT
  Age: 61 Year
  Sex: Male
  Weight: 75 kg

DRUGS (12)
  1. LOXEN (NICARDIPINE) [Suspect]
     Active Substance: NICARDIPINE
     Indication: HYPERTENSION
     Route: 042
     Dates: start: 20190127, end: 20190209
  2. IMIPENEM CILASTATINE MYLAN [Suspect]
     Active Substance: IMIPENEM
     Indication: LUNG INFECTION
     Route: 042
     Dates: start: 20190120, end: 20190131
  3. VALACICLOVIR [Concomitant]
     Active Substance: VALACYCLOVIR HYDROCHLORIDE
  4. METHOTREXATE. [Suspect]
     Active Substance: METHOTREXATE
     Indication: CENTRAL NERVOUS SYSTEM LYMPHOMA
     Route: 037
     Dates: start: 20190118, end: 20190118
  5. ARACYTINE [Suspect]
     Active Substance: CYTARABINE
     Indication: CENTRAL NERVOUS SYSTEM LYMPHOMA
     Dosage: 5760 MILLIGRAM DAILY;
     Route: 051
     Dates: start: 20190117, end: 20190118
  6. TRAMADOL (CHLORHYDRATE DE) [Concomitant]
     Active Substance: TRAMADOL HYDROCHLORIDE
  7. NORADRENALINE [Suspect]
     Active Substance: NOREPINEPHRINE
     Indication: ENDOTRACHEAL INTUBATION
     Route: 042
     Dates: start: 20190126, end: 20190127
  8. SOLU-MEDROL [Concomitant]
     Active Substance: METHYLPREDNISOLONE SODIUM SUCCINATE
  9. LYRICA [Concomitant]
     Active Substance: PREGABALIN
  10. PANTOPRAZOLE [Concomitant]
     Active Substance: PANTOPRAZOLE
  11. GABAPENTINE [Concomitant]
     Active Substance: GABAPENTIN
  12. KEPPRA [Concomitant]
     Active Substance: LEVETIRACETAM

REACTIONS (2)
  - Confusional state [Recovered/Resolved]
  - Cholestasis [Recovering/Resolving]

NARRATIVE: CASE EVENT DATE: 20190206
